FAERS Safety Report 4502466-5 (Version None)
Quarter: 2004Q4

REPORT INFORMATION
  Report Type: 
  Country: None (occurrence: None)
  Receive Date: 20041112
  Receipt Date: 20041027
  Transmission Date: 20050328
  Serious: Yes (Hospitalization)
  Sender: FDA-Public Use
  Company Number: J200404480

PATIENT
  Age: 80 Year
  Sex: Female

DRUGS (4)
  1. (MYSLEE) ZOLPIDEM TABLET 10MG [Suspect]
     Dosage: 10 MG / 5MG  PO
     Route: 048
     Dates: start: 20030829, end: 20031215
  2. (MYSLEE) ZOLPIDEM TABLET 10MG [Suspect]
     Dosage: 10 MG / 5MG  PO
     Route: 048
     Dates: start: 20031224
  3. SIGMART (NICORANDIL) [Concomitant]
  4. CALONAL (ACETAMINOPHEN) [Concomitant]

REACTIONS (4)
  - DEHYDRATION [None]
  - DELIRIUM [None]
  - LOSS OF CONSCIOUSNESS [None]
  - VASODILATATION [None]
